FAERS Safety Report 8612817-8 (Version None)
Quarter: 2012Q3

REPORT INFORMATION
  Report Type: 
  Country: None (occurrence: None)
  Receive Date: 20120822
  Receipt Date: 20120118
  Transmission Date: 20120928
  Serious: No
  Sender: FDA-Public Use
  Company Number: US-ASTRAZENECA-2010SE48227

PATIENT
  Age: 71 Year
  Sex: Female
  Weight: 93.9 kg

DRUGS (18)
  1. SYMBICORT [Suspect]
     Indication: CHRONIC OBSTRUCTIVE PULMONARY DISEASE
     Dosage: 320 MCG BID
     Route: 055
     Dates: start: 20100101
  2. POTASSIUM [Concomitant]
  3. TOPROL-XL [Suspect]
     Route: 048
  4. CALCIUM [Concomitant]
  5. BIOTIN [Concomitant]
  6. IBUPROFEN [Concomitant]
     Dosage: PRN
  7. KEFLEX [Concomitant]
     Dosage: PRN
  8. SYMBICORT [Suspect]
     Dosage: TWO PUFF, EVERY DAY
     Route: 055
     Dates: start: 20100101
  9. LASIX [Concomitant]
  10. AVALIDE [Concomitant]
  11. ASCORBIC ACID [Concomitant]
  12. LIPITOR [Concomitant]
  13. ASPIRIN [Concomitant]
  14. NEURONTIN [Concomitant]
  15. VITAMIN D [Concomitant]
  16. SYMBICORT [Suspect]
     Dosage: TWO PUFF, EVERY DAY
     Route: 055
     Dates: start: 20100101
  17. VENTOLIN [Concomitant]
  18. SYMBICORT [Suspect]
     Indication: ASTHMA
     Dosage: 320 MCG BID
     Route: 055
     Dates: start: 20100101

REACTIONS (7)
  - ONYCHOCLASIS [None]
  - DYSPNOEA [None]
  - APHONIA [None]
  - PNEUMONIA [None]
  - ALOPECIA [None]
  - INAPPROPRIATE SCHEDULE OF DRUG ADMINISTRATION [None]
  - NASOPHARYNGITIS [None]
